FAERS Safety Report 14278971 (Version 5)
Quarter: 2018Q1

REPORT INFORMATION
  Report Type: Report from Study
  Country: US (occurrence: US)
  Receive Date: 20171212
  Receipt Date: 20180322
  Transmission Date: 20180508
  Serious: Yes (Life-Threatening, Hospitalization, Other)
  Sender: FDA-Public Use
  Company Number: US-ACTELION-A-NJ2016-147284

PATIENT
  Age: 55 Year
  Sex: Male
  Weight: 88.44 kg

DRUGS (5)
  1. REVATIO [Concomitant]
     Active Substance: SILDENAFIL CITRATE
  2. VENTAVIS [Suspect]
     Active Substance: ILOPROST
     Indication: PULMONARY ARTERIAL HYPERTENSION
     Dosage: 5.0 MCG, 6-9 X^S QD
     Route: 055
     Dates: start: 20140814
  3. OPSUMIT [Suspect]
     Active Substance: MACITENTAN
     Indication: PULMONARY ARTERIAL HYPERTENSION
     Dosage: 10 MG, QD
     Route: 048
     Dates: start: 20160125
  4. COUMADIN [Concomitant]
     Active Substance: WARFARIN SODIUM
  5. AMLODIPINE [Concomitant]
     Active Substance: AMLODIPINE BESYLATE

REACTIONS (16)
  - Nocturnal dyspnoea [Unknown]
  - Muscle spasms [Unknown]
  - Choking [Unknown]
  - Dyspnoea exertional [Unknown]
  - Fall [Unknown]
  - Nasopharyngitis [Unknown]
  - Myocardial infarction [Unknown]
  - Pericardial effusion [Unknown]
  - Dyspnoea [Unknown]
  - Loss of consciousness [Unknown]
  - Cardiac failure congestive [Unknown]
  - Cardiac disorder [Unknown]
  - Pruritus [Unknown]
  - Respiratory failure [Unknown]
  - Oedema [Unknown]
  - Oedema peripheral [Unknown]

NARRATIVE: CASE EVENT DATE: 20171219
